FAERS Safety Report 9580880 (Version 1)
Quarter: 2013Q4

REPORT INFORMATION
  Report Type: Spontaneous
  Country: US (occurrence: None)
  Receive Date: 20131001
  Receipt Date: 20131001
  Transmission Date: 20140711
  Serious: No
  Sender: FDA-Public Use
  Company Number: None

PATIENT
  Age: 61 Year
  Sex: Female
  Weight: 65.77 kg

DRUGS (1)
  1. VALSARTAN-HCTZ [Suspect]
     Dosage: 1 TABLET, ONCE DAILY, TAKEN BY MOUTH
     Dates: start: 20130917, end: 20130920

REACTIONS (2)
  - Dehydration [None]
  - Urinary tract infection [None]
